FAERS Safety Report 12883529 (Version 1)
Quarter: 2016Q4

REPORT INFORMATION
  Report Type: Spontaneous
  Country: GB (occurrence: GB)
  Receive Date: 20161025
  Receipt Date: 20161025
  Transmission Date: 20170207
  Serious: Yes (Other)
  Sender: FDA-Public Use
  Company Number: PHFR2016GB008355

PATIENT
  Sex: Male

DRUGS (1)
  1. ZOMETA [Suspect]
     Active Substance: ZOLEDRONIC ACID
     Indication: PRODUCT USED FOR UNKNOWN INDICATION
     Route: 065

REACTIONS (6)
  - Plasma cell myeloma [Not Recovered/Not Resolved]
  - Pain [Unknown]
  - Contusion [Unknown]
  - Raynaud^s phenomenon [Unknown]
  - Neuropathy peripheral [Unknown]
  - Dyspnoea [Unknown]
